FAERS Safety Report 9631786 (Version 1)
Quarter: 2013Q4

REPORT INFORMATION
  Report Type: Spontaneous
  Country: US (occurrence: None)
  Receive Date: 20131017
  Receipt Date: 20131017
  Transmission Date: 20140711
  Serious: Yes (Disabling)
  Sender: FDA-Public Use
  Company Number: None

PATIENT
  Age: 68 Year
  Sex: 0

DRUGS (1)
  1. BENAZEP/HCTZ [Suspect]
     Indication: HYPERTENSION
     Route: 048
     Dates: start: 20130326, end: 20130708

REACTIONS (2)
  - Dental caries [None]
  - Oral disorder [None]
